FAERS Safety Report 6990823-7 (Version None)
Quarter: 2010Q3

REPORT INFORMATION
  Report Type: 
  Country: None (occurrence: None)
  Receive Date: 20100916
  Receipt Date: 20100824
  Transmission Date: 20110219
  Serious: No
  Sender: FDA-Public Use
  Company Number: GB-PFIZER INC-2010088877

PATIENT
  Age: 73 Year
  Sex: Female

DRUGS (3)
  1. PREGABALIN [Suspect]
     Indication: ANXIETY
     Dosage: 50 MG, 2X/DAY
     Route: 048
     Dates: start: 20100702
  2. MIRTAZAPINE [Concomitant]
     Indication: ANXIETY
     Dosage: 45 MG, 1X/DAY
     Route: 048
     Dates: start: 20091201
  3. MIRTAZAPINE [Concomitant]
     Indication: DEPRESSION

REACTIONS (1)
  - SEDATION [None]
